FAERS Safety Report 8886988 (Version 1)
Quarter: 2012Q4

REPORT INFORMATION
  Report Type: 
  Country: US (occurrence: US)
  Receive Date: 20121105
  Receipt Date: 20121105
  Transmission Date: 20130627
  Serious: Yes (Death, Hospitalization, Other)
  Sender: FDA-Public Use
  Company Number: US-ELI_LILLY_AND_COMPANY-US201210009665

PATIENT
  Sex: Male

DRUGS (1)
  1. GEMZAR [Suspect]
     Indication: LUNG NEOPLASM MALIGNANT
     Dosage: 1500 mg, other
     Route: 065
     Dates: start: 20120214, end: 20120417

REACTIONS (3)
  - Death [Fatal]
  - Hospitalisation [Unknown]
  - Respiratory disorder [Unknown]
